FAERS Safety Report 4685522-0 (Version None)
Quarter: 2005Q2

REPORT INFORMATION
  Report Type: 
  Country: None (occurrence: None)
  Receive Date: 20050531
  Receipt Date: 20050324
  Transmission Date: 20051028
  Serious: No
  Sender: FDA-Public Use
  Company Number: WAES 0503USA04444

PATIENT
  Age: 45 Year
  Sex: Male
  Weight: 107.9561 kg

DRUGS (7)
  1. ZETIA [Suspect]
     Indication: BLOOD CHOLESTEROL INCREASED
     Dosage: SEE IMAGE
     Route: 048
     Dates: end: 20050402
  2. ZETIA [Suspect]
     Indication: BLOOD CHOLESTEROL INCREASED
     Dosage: SEE IMAGE
     Route: 048
     Dates: start: 20050312
  3. COGENTIN [Concomitant]
  4. DEPAKOTE [Concomitant]
  5. LIPITOR [Concomitant]
  6. PROLIXIN [Concomitant]
  7. RANITIDINE [Concomitant]

REACTIONS (1)
  - HYPOAESTHESIA ORAL [None]
